FAERS Safety Report 17979328 (Version 1)
Quarter: 2020Q3

REPORT INFORMATION
  Report Type: Spontaneous
  Country: US (occurrence: US)
  Receive Date: 20200703
  Receipt Date: 20200703
  Transmission Date: 20201103
  Serious: No
  Sender: FDA-Public Use
  Company Number: US-ELI_LILLY_AND_COMPANY-US202006013083

PATIENT
  Sex: Male

DRUGS (1)
  1. TRULICITY [Suspect]
     Active Substance: DULAGLUTIDE
     Indication: PRODUCT USED FOR UNKNOWN INDICATION
     Dosage: 1.5 MG, UNKNOWN
     Route: 065
     Dates: start: 2018

REACTIONS (5)
  - Blood pressure decreased [Unknown]
  - Glycosylated haemoglobin increased [Unknown]
  - Cardiac flutter [Unknown]
  - Anxiety [Unknown]
  - Heart rate increased [Unknown]

NARRATIVE: CASE EVENT DATE: 2020
